FAERS Safety Report 6290541-7 (Version None)
Quarter: 2009Q3

REPORT INFORMATION
  Report Type: 
  Country: None (occurrence: None)
  Receive Date: 20090730
  Receipt Date: 20070824
  Transmission Date: 20100115
  Serious: Yes (Hospitalization, Other)
  Sender: FDA-Public Use
  Company Number: US-ASTRAZENECA-2007UW05964

PATIENT
  Age: 41 Year
  Sex: Male
  Weight: 137.4 kg

DRUGS (31)
  1. SEROQUEL [Suspect]
     Indication: BIPOLAR DISORDER
     Route: 048
     Dates: start: 19980101, end: 20040101
  2. SEROQUEL [Suspect]
     Indication: DEPRESSION
     Route: 048
     Dates: start: 19980101, end: 20040101
  3. SEROQUEL [Suspect]
     Indication: SLEEP DISORDER
     Route: 048
     Dates: start: 19980101, end: 20040101
  4. SEROQUEL [Suspect]
     Indication: HALLUCINATION, AUDITORY
     Route: 048
     Dates: start: 19980101, end: 20040101
  5. SEROQUEL [Suspect]
     Indication: MANIA
     Route: 048
     Dates: start: 19980101, end: 20040101
  6. SEROQUEL [Suspect]
     Dosage: 100 TO 400 MG
     Route: 048
     Dates: start: 20031030
  7. SEROQUEL [Suspect]
     Dosage: 100 TO 400 MG
     Route: 048
     Dates: start: 20031030
  8. SEROQUEL [Suspect]
     Dosage: 100 TO 400 MG
     Route: 048
     Dates: start: 20031030
  9. SEROQUEL [Suspect]
     Dosage: 100 TO 400 MG
     Route: 048
     Dates: start: 20031030
  10. SEROQUEL [Suspect]
     Dosage: 100 TO 400 MG
     Route: 048
     Dates: start: 20031030
  11. CLOZARIL [Concomitant]
  12. NAVANE [Concomitant]
     Dates: start: 19980224
  13. STELAZINE [Concomitant]
  14. LISINOPRIL [Concomitant]
     Dosage: 5 TO 20 MG
     Dates: start: 20021223
  15. HYDROXYZINE [Concomitant]
     Indication: SLEEP DISORDER
     Dosage: 75 TO 150 MG
     Route: 048
     Dates: start: 20031030
  16. GABAPENTIN [Concomitant]
     Route: 048
     Dates: start: 20040827
  17. FLUOXETINE HCL [Concomitant]
     Indication: DEPRESSION
     Route: 048
     Dates: start: 20021223
  18. TRAMADOL [Concomitant]
     Route: 048
     Dates: start: 20040827
  19. ATENOLOL [Concomitant]
     Indication: BLOOD PRESSURE
     Dosage: 25 TO 100 MG
     Route: 048
     Dates: start: 19990818
  20. DEPAKOTE [Concomitant]
     Route: 048
     Dates: start: 19980301
  21. CLONIDINE [Concomitant]
     Dates: start: 19980224
  22. VERAPAMIL EXTENDED-RELEASE [Concomitant]
     Route: 048
     Dates: start: 19980224
  23. VALPROIC ACID [Concomitant]
     Dates: start: 19980224
  24. PAXIL [Concomitant]
     Dates: start: 19980224
  25. BUSPIRONE HCL [Concomitant]
     Dosage: 15 TO 30 MG
     Route: 048
     Dates: start: 19990721
  26. SIMVASTATIN [Concomitant]
     Dates: start: 20021223
  27. GEMFIBROZIL [Concomitant]
     Route: 048
     Dates: start: 19990818
  28. HYDROCHLOROTHIAZIDE [Concomitant]
     Dates: start: 19990419
  29. NAPROXEN [Concomitant]
     Dates: start: 19990517
  30. OXYCODONE HCL AND ACETAMINOPHEN [Concomitant]
     Indication: PAIN IN EXTREMITY
     Dosage: 5, 325 MG, TAKE 1-2 TABLET EVERY 4-6 HOURS
     Dates: start: 19990623
  31. ACETAMINOPHEN [Concomitant]
     Indication: ARTHRITIS
     Dosage: TAKE 2 OR 3 TABLETS QID
     Dates: start: 19990611

REACTIONS (5)
  - DIABETES MELLITUS INADEQUATE CONTROL [None]
  - DIABETIC KETOACIDOSIS [None]
  - DIABETIC RETINOPATHY [None]
  - TYPE 1 DIABETES MELLITUS [None]
  - TYPE 2 DIABETES MELLITUS [None]
